FAERS Safety Report 8791826 (Version 3)
Quarter: 2013Q2

REPORT INFORMATION
  Report Type: Spontaneous
  Country: BR (occurrence: BR)
  Receive Date: 20120918
  Receipt Date: 20130417
  Transmission Date: 20140414
  Serious: Yes (Hospitalization, Other)
  Sender: FDA-Public Use
  Company Number: BR-PFIZER INC-2012227993

PATIENT
  Age: 56 Year
  Sex: Female
  Weight: 64 kg

DRUGS (4)
  1. LYRICA [Suspect]
     Indication: FIBROMYALGIA
     Dosage: 1 CAPSULE (75 MG), 2X/DAY
     Route: 048
     Dates: start: 201203
  2. LYRICA [Suspect]
     Dosage: 150 MG, 1X/DAY
     Dates: start: 2012, end: 2012
  3. LYRICA [Suspect]
     Dosage: 75 MG, 1X/DAY
  4. ZINC ^VITAMIN^ [Concomitant]

REACTIONS (11)
  - Cerebrovascular accident [Unknown]
  - Cardiac disorder [Unknown]
  - Arrhythmia [Unknown]
  - Cardiac aneurysm [Unknown]
  - Headache [Unknown]
  - Pain [Unknown]
  - Tremor [Unknown]
  - Chest pain [Unknown]
  - Pain in extremity [Unknown]
  - Dyspnoea [Unknown]
  - Drug ineffective [Unknown]
